FAERS Safety Report 23911320 (Version 1)
Quarter: 2024Q2

REPORT INFORMATION
  Report Type: Spontaneous
  Country: CH (occurrence: CH)
  Receive Date: 20240528
  Receipt Date: 20240528
  Transmission Date: 20240715
  Serious: Yes (Life-Threatening, Other)
  Sender: FDA-Public Use
  Company Number: None

PATIENT
  Age: 80 Year
  Sex: Female
  Weight: 62 kg

DRUGS (4)
  1. METHOTREXATE [Suspect]
     Active Substance: METHOTREXATE
     Indication: Rheumatoid arthritis
     Dosage: 2.5 MG, WEEKLY
     Route: 048
     Dates: start: 20240411, end: 20240420
  2. HYRIMOZ [Suspect]
     Active Substance: ADALIMUMAB-ADAZ
     Dosage: 20 MG, EVERY 2 WEEKS
     Dates: start: 20240411, end: 20240420
  3. NOVALGIN (METAMIZOLE SODIUM) [Suspect]
     Active Substance: METAMIZOLE SODIUM
     Indication: Pain
     Dosage: 500 MG, AS NEEDED (MAX. 2000 MG PER DAY)
     Route: 048
     Dates: start: 202401, end: 20240422
  4. PEMBROLIZUMAB [Concomitant]
     Active Substance: PEMBROLIZUMAB
     Indication: Adenocarcinoma of colon
     Dosage: UNK
     Route: 042
     Dates: end: 202403

REACTIONS (5)
  - Pancytopenia [Unknown]
  - Agranulocytosis [Unknown]
  - General physical health deterioration [Unknown]
  - Aphthous ulcer [Unknown]
  - Pain [Unknown]

NARRATIVE: CASE EVENT DATE: 20240421
